FAERS Safety Report 6936392-9 (Version None)
Quarter: 2010Q3

REPORT INFORMATION
  Report Type: 
  Country: None (occurrence: None)
  Receive Date: 20100823
  Receipt Date: 20100817
  Transmission Date: 20110219
  Serious: Yes (Other)
  Sender: FDA-Public Use
  Company Number: US-SANOFI-AVENTIS-2010SA049262

PATIENT

DRUGS (8)
  1. GLYBURIDE [Suspect]
     Route: 065
  2. CEPHALEXIN [Interacting]
     Route: 065
  3. AZITHROMYCIN [Interacting]
     Route: 065
  4. CIPROFLOXACIN [Interacting]
     Route: 065
  5. COTRIM [Interacting]
     Route: 065
  6. CLARITHROMYCIN [Interacting]
     Route: 065
  7. FLUCONAZOLE [Interacting]
     Route: 065
  8. LEVOFLOXACIN [Interacting]
     Route: 065

REACTIONS (2)
  - DRUG INTERACTION [None]
  - HYPOGLYCAEMIA [None]
